FAERS Safety Report 18170276 (Version 1)
Quarter: 2020Q3

REPORT INFORMATION
  Report Type: Spontaneous
  Country: DE (occurrence: DE)
  Receive Date: 20200819
  Receipt Date: 20200819
  Transmission Date: 20201103
  Serious: Yes (Hospitalization)
  Sender: FDA-Public Use
  Company Number: DE-MYLANLABS-2020M1071223

PATIENT
  Age: 72 Year
  Sex: Male

DRUGS (8)
  1. BETAHISTIN                         /00141802/ [Concomitant]
     Active Substance: BETAHISTINE HYDROCHLORIDE
     Dosage: 12 MILLIGRAM (12 MG, 0.5?0?0.5?0, TABLETTEN)
     Route: 048
  2. PANTOPRAZOL                        /01263201/ [Concomitant]
     Active Substance: PANTOPRAZOLE
     Dosage: 20 MILLIGRAM, QD,20 MG, 1?0?0?0, TABLETTEN
     Route: 048
  3. MIRTAZAPINE. [Suspect]
     Active Substance: MIRTAZAPINE
     Indication: PRODUCT USED FOR UNKNOWN INDICATION
     Dosage: 45 MILLIGRAM, QD,45 MG, 0?0?1?0, TABLETTEN
     Route: 048
  4. APIXABAN [Concomitant]
     Active Substance: APIXABAN
     Dosage: 5 MILLIGRAM, BID,5 MG, 1?0?1?0, TABLETTEN
     Route: 048
  5. TORASEMID [Concomitant]
     Active Substance: TORSEMIDE
     Dosage: 5 MILLIGRAM, QD,5 MG, 1?0?0?0, TABLETTEN
     Route: 048
  6. ALLOPURINOL. [Concomitant]
     Active Substance: ALLOPURINOL
     Dosage: 300 MILLIGRAM, QD,300 MG, 0?0?1?0, TABLETTEN
     Route: 048
  7. IBUPROFEN. [Concomitant]
     Active Substance: IBUPROFEN
     Dosage: 600 MILLIGRAM, TID,600 MG, 1?1?1?0, TABLETTEN
     Route: 048
  8. BISOPROLOL [Concomitant]
     Active Substance: BISOPROLOL
     Dosage: 5 MILLIGRAM, QD,5 MG, 1?0?0?0, TABLETTEN
     Route: 048

REACTIONS (2)
  - Femur fracture [Unknown]
  - Fall [Unknown]

NARRATIVE: CASE EVENT DATE: 20200308
